FAERS Safety Report 18510066 (Version 1)
Quarter: 2020Q4

REPORT INFORMATION
  Report Type: Spontaneous
  Country: DE (occurrence: DE)
  Receive Date: 20201117
  Receipt Date: 20201117
  Transmission Date: 20210114
  Serious: Yes (Hospitalization)
  Sender: FDA-Public Use
  Company Number: DE-TEVA-2020-DE-1848568

PATIENT
  Age: 72 Year
  Sex: Male
  Weight: 89 kg

DRUGS (12)
  1. FLUOROURACIL. [Suspect]
     Active Substance: FLUOROURACIL
     Dosage: LAST 07022020
     Route: 065
  2. ATORVASTATIN [Concomitant]
     Active Substance: ATORVASTATIN
     Dosage: 30 MILLIGRAM DAILY;  0-0-1-0
  3. METFORMIN [Concomitant]
     Active Substance: METFORMIN HYDROCHLORIDE
     Dosage: .5 DOSAGE FORMS DAILY; 1000 MG, 0.5-0-0-0
  4. SPIOLTO RESPIMAT 2,5 MIKROGRAMM/2,5 MIKROGRAMM [Concomitant]
     Dosage: 2 DOSAGE FORMS DAILY; 2.5|2.5 UG, 2-0-0-0
  5. CANDESARTAN/HYDROCHLOROTHIAZID [Concomitant]
     Active Substance: CANDESARTAN CILEXETIL\HYDROCHLOROTHIAZIDE
     Dosage: 1 DOSAGE FORMS DAILY; 16|12.5 MG, 1-0-0-0
  6. FOLINSAURE [Suspect]
     Active Substance: LEUCOVORIN
     Dosage: LAST 07022020
     Route: 065
  7. PANTOPRAZOL [Concomitant]
     Active Substance: PANTOPRAZOLE SODIUM
     Dosage: 80 MILLIGRAM DAILY; 1-0-1-0
  8. ACETYLSALICYLSAURE [Concomitant]
     Active Substance: ASPIRIN
     Dosage: 100 MILLIGRAM DAILY; 1-0-0-0
  9. LERCANIDIPIN [Concomitant]
     Active Substance: LERCANIDIPINE
     Dosage: .5 DOSAGE FORMS DAILY; 10 MG, 0.5-0-0-0
  10. TORASEMID [Concomitant]
     Active Substance: TORSEMIDE
     Dosage: 10 MILLIGRAM DAILY; 1-0-0-0
  11. METOPROLOL. [Concomitant]
     Active Substance: METOPROLOL
     Dosage: 100 MILLIGRAM DAILY;  1-0-0-0
  12. OXALIPLATIN. [Suspect]
     Active Substance: OXALIPLATIN
     Dosage: LAST 07022020
     Route: 065

REACTIONS (5)
  - Chills [Unknown]
  - Pyrexia [Unknown]
  - Fatigue [Unknown]
  - General physical health deterioration [Unknown]
  - Dizziness [Unknown]
